FAERS Safety Report 4873792-5 (Version None)
Quarter: 2006Q1

REPORT INFORMATION
  Report Type: 
  Country: None (occurrence: None)
  Receive Date: 20060106
  Receipt Date: 20051227
  Transmission Date: 20060701
  Serious: Yes (Other)
  Sender: FDA-Public Use
  Company Number: JP-ABBOTT-05P-087-0320806-00

PATIENT
  Age: 28 Year
  Sex: Female

DRUGS (11)
  1. NORVIR [Suspect]
     Indication: HIV INFECTION
     Route: 048
     Dates: start: 20001003, end: 20041018
  2. ZIDOVUDINE [Concomitant]
     Indication: HIV INFECTION
     Route: 048
     Dates: start: 19980414, end: 20001002
  3. ZIDOVUDINE [Concomitant]
     Route: 048
     Dates: start: 20041019
  4. LAMIVUDINE [Concomitant]
     Indication: HIV INFECTION
     Route: 048
     Dates: start: 19980414, end: 20001002
  5. LAMIVUDINE [Concomitant]
     Route: 048
     Dates: start: 20041019
  6. DIDANOSINE [Concomitant]
     Indication: HIV INFECTION
     Route: 048
     Dates: start: 20001003, end: 20041018
  7. STAVUDINE [Concomitant]
     Indication: HIV INFECTION
     Route: 048
     Dates: start: 20001003, end: 20041018
  8. NELFINAVIR [Concomitant]
     Indication: HIV INFECTION
     Route: 048
     Dates: start: 19980414, end: 20001002
  9. SAQUINAVIR [Concomitant]
     Indication: HIV INFECTION
     Route: 048
     Dates: start: 20001003, end: 20041018
  10. EFAVIRENZ [Concomitant]
     Indication: HIV INFECTION
     Route: 048
     Dates: start: 20001003, end: 20041018
  11. ATAZANAVIR [Concomitant]
     Indication: DRUG USE FOR UNKNOWN INDICATION
     Dates: start: 20041019

REACTIONS (1)
  - ABORTION INDUCED [None]
